FAERS Safety Report 15157817 (Version 1)
Quarter: 2018Q3

REPORT INFORMATION
  Report Type: Spontaneous
  Country: US (occurrence: US)
  Receive Date: 20180718
  Receipt Date: 20180718
  Transmission Date: 20181010
  Serious: No
  Sender: FDA-Public Use
  Company Number: US-PFIZER INC-2018287910

PATIENT
  Age: 80 Year
  Sex: Female
  Weight: 62.14 kg

DRUGS (4)
  1. ADVIL [Suspect]
     Active Substance: IBUPROFEN
     Indication: TOOTHACHE
     Dosage: 200MG 4 TABLETS, EVERY 6 HOURS, SOMETIMES TAKES IT BETWEEN 5 TO 6 HOURS, SOMETIMES BE 4 HOURS APART
     Route: 048
  2. MAGNESIUM [Concomitant]
     Active Substance: MAGNESIUM
     Indication: SUPPLEMENTATION THERAPY
     Dosage: 250 MG, 1X/DAY
     Route: 048
     Dates: start: 201804
  3. FISH OIL [Concomitant]
     Active Substance: FISH OIL
     Indication: SUPPLEMENTATION THERAPY
     Dosage: 1400 MG, 1X/DAY, GEL CAPSULE
  4. VITAMIN D [Concomitant]
     Active Substance: CHOLECALCIFEROL
     Indication: SUPPLEMENTATION THERAPY
     Dosage: 1000 IU, 1X/DAY
     Dates: start: 201804

REACTIONS (4)
  - Joint dislocation [Unknown]
  - Hypoacusis [Recovering/Resolving]
  - Intentional overdose [Unknown]
  - Hypoaesthesia [Unknown]

NARRATIVE: CASE EVENT DATE: 20180716
